FAERS Safety Report 21199041 (Version 1)
Quarter: 2022Q3

REPORT INFORMATION
  Report Type: Spontaneous
  Country: US (occurrence: US)
  Receive Date: 20220811
  Receipt Date: 20220811
  Transmission Date: 20221026
  Serious: No
  Sender: FDA-Public Use
  Company Number: US-009507513-2207USA006487

PATIENT
  Age: 35 Year
  Sex: Female

DRUGS (14)
  1. PRIMAXIN IV [Suspect]
     Active Substance: CILASTATIN SODIUM\IMIPENEM
     Indication: Wound infection pseudomonas
  2. PRIMAXIN IV [Suspect]
     Active Substance: CILASTATIN SODIUM\IMIPENEM
     Indication: Mycobacterium abscessus infection
  3. PRIMAXIN IV [Suspect]
     Active Substance: CILASTATIN SODIUM\IMIPENEM
     Indication: Bacterial infection
  4. AMIKACIN [Suspect]
     Active Substance: AMIKACIN
     Indication: Mycobacterium abscessus infection
  5. AMIKACIN [Suspect]
     Active Substance: AMIKACIN
     Indication: Bacterial infection
  6. AMIKACIN [Suspect]
     Active Substance: AMIKACIN
     Indication: Wound infection pseudomonas
  7. CEFEPIME [Suspect]
     Active Substance: CEFEPIME HYDROCHLORIDE
     Indication: Bacterial infection
  8. CEFEPIME [Suspect]
     Active Substance: CEFEPIME HYDROCHLORIDE
     Indication: Mycobacterium abscessus infection
  9. CEFEPIME [Suspect]
     Active Substance: CEFEPIME HYDROCHLORIDE
     Indication: Wound infection pseudomonas
  10. OMADACYCLINE [Suspect]
     Active Substance: OMADACYCLINE
     Indication: Mycobacterium abscessus infection
  11. OMADACYCLINE [Suspect]
     Active Substance: OMADACYCLINE
     Indication: Bacterial infection
  12. OMADACYCLINE [Suspect]
     Active Substance: OMADACYCLINE
     Indication: Wound infection pseudomonas
  13. TACROLIMUS [Concomitant]
     Active Substance: TACROLIMUS
     Indication: Immunosuppression
  14. MYCOPHENOLIC ACID [Concomitant]
     Active Substance: MYCOPHENOLIC ACID
     Indication: Immunosuppression

REACTIONS (2)
  - Drug ineffective [Unknown]
  - Diarrhoea [Unknown]
